FAERS Safety Report 22227307 (Version 5)
Quarter: 2023Q4

REPORT INFORMATION
  Report Type: Report from Study
  Country: US (occurrence: US)
  Receive Date: 20230419
  Receipt Date: 20231007
  Transmission Date: 20240109
  Serious: No
  Sender: FDA-Public Use
  Company Number: US-002147023-NVSC2023US089155

PATIENT
  Sex: Female

DRUGS (1)
  1. ENTRESTO [Suspect]
     Active Substance: SACUBITRIL\VALSARTAN
     Indication: Product used for unknown indication
     Dosage: UNK
     Route: 048
     Dates: start: 202303

REACTIONS (7)
  - Chromaturia [Unknown]
  - Illness [Unknown]
  - Fluid retention [Unknown]
  - Pollakiuria [Unknown]
  - Depressed mood [Unknown]
  - Blood pressure increased [Unknown]
  - Product distribution issue [Unknown]
